FAERS Safety Report 4971021-5 (Version None)
Quarter: 2006Q2

REPORT INFORMATION
  Report Type: 
  Country: None (occurrence: None)
  Receive Date: 20060411
  Receipt Date: 20060411
  Transmission Date: 20061013
  Serious: No
  Sender: FDA-Public Use
  Company Number: None

PATIENT

DRUGS (2)
  1. SUPHEDRINE PE 10 MG KIRKLAND [Suspect]
     Indication: NASAL CONGESTION
     Dosage: EVERY 4 HOURS PO
     Route: 048
  2. SUPHEDRINE PE 10 MG KIRKLAND [Suspect]
     Indication: SINUS CONGESTION
     Dosage: EVERY 4 HOURS PO
     Route: 048

REACTIONS (1)
  - MEDICATION ERROR [None]
